FAERS Safety Report 7595436-4 (Version None)
Quarter: 2011Q3

REPORT INFORMATION
  Report Type: 
  Country: None (occurrence: None)
  Receive Date: 20110707
  Receipt Date: 20110701
  Transmission Date: 20111222
  Serious: Yes (Death, Other)
  Sender: FDA-Public Use
  Company Number: JP-ROCHE-783515

PATIENT
  Sex: Female

DRUGS (20)
  1. CISPLATIN [Concomitant]
     Route: 041
     Dates: start: 20110301, end: 20110301
  2. EMEND [Concomitant]
     Route: 048
     Dates: start: 20110301, end: 20110301
  3. DOCETAXEL [Concomitant]
     Route: 041
     Dates: start: 20110323, end: 20110323
  4. EMEND [Concomitant]
     Route: 048
     Dates: start: 20110324, end: 20110325
  5. EMEND [Concomitant]
     Route: 048
     Dates: start: 20110510, end: 20110510
  6. BEVACIZUMAB [Suspect]
     Indication: LUNG ADENOCARCINOMA
     Route: 041
     Dates: start: 20110301, end: 20110301
  7. BEVACIZUMAB [Suspect]
     Route: 041
     Dates: start: 20110510, end: 20110510
  8. CISPLATIN [Concomitant]
     Route: 041
     Dates: start: 20110413, end: 20110413
  9. EMEND [Concomitant]
     Route: 048
     Dates: start: 20110323, end: 20110323
  10. EMEND [Concomitant]
     Route: 048
     Dates: start: 20110302, end: 20110303
  11. EMEND [Concomitant]
     Route: 048
     Dates: start: 20110414, end: 20110415
  12. BEVACIZUMAB [Suspect]
     Route: 041
     Dates: start: 20110323, end: 20110323
  13. BEVACIZUMAB [Suspect]
     Route: 041
     Dates: start: 20110413, end: 20110413
  14. DOCETAXEL [Concomitant]
     Route: 041
     Dates: start: 20110413, end: 20110413
  15. EMEND [Concomitant]
     Route: 048
     Dates: start: 20110413, end: 20110413
  16. CISPLATIN [Concomitant]
     Route: 041
     Dates: start: 20110323, end: 20110323
  17. EMEND [Concomitant]
     Route: 048
     Dates: start: 20110511, end: 20110512
  18. CISPLATIN [Concomitant]
     Route: 041
     Dates: start: 20110510, end: 20110510
  19. DOCETAXEL [Concomitant]
     Dosage: REPORTED AS DOCETAXEL HYDRATE
     Route: 041
     Dates: start: 20110301, end: 20110301
  20. DOCETAXEL [Concomitant]
     Route: 041
     Dates: start: 20110510, end: 20110510

REACTIONS (5)
  - PULMONARY ALVEOLAR HAEMORRHAGE [None]
  - NEUTROPHIL COUNT DECREASED [None]
  - CARDIO-RESPIRATORY ARREST [None]
  - HAEMOPTYSIS [None]
  - ASPHYXIA [None]
